FAERS Safety Report 13556081 (Version 1)
Quarter: 2017Q2

REPORT INFORMATION
  Report Type: Spontaneous
  Country: US (occurrence: US)
  Receive Date: 20170517
  Receipt Date: 20170517
  Transmission Date: 20170830
  Serious: No
  Sender: FDA-Public Use
  Company Number: US-SA-2016SA200541

PATIENT
  Age: 61 Year
  Sex: Female
  Weight: 76.3 kg

DRUGS (7)
  1. METFORMIN [Concomitant]
     Active Substance: METFORMIN HYDROCHLORIDE
  2. TOUJEO [Suspect]
     Active Substance: INSULIN GLARGINE
     Indication: TYPE 2 DIABETES MELLITUS
     Dosage: DOSE:60 UNIT(S)
     Route: 065
     Dates: start: 201609
  3. INVOKANA [Concomitant]
     Active Substance: CANAGLIFLOZIN
  4. HUMALOG [Concomitant]
     Active Substance: INSULIN LISPRO
  5. SOLOSTAR [Suspect]
     Active Substance: DEVICE
     Indication: TYPE 2 DIABETES MELLITUS
     Dates: start: 201609
  6. TOUJEO [Suspect]
     Active Substance: INSULIN GLARGINE
     Indication: TYPE 2 DIABETES MELLITUS
     Dosage: DOSE:55 UNIT(S)
     Route: 065
     Dates: start: 201608
  7. SOLOSTAR [Suspect]
     Active Substance: DEVICE
     Indication: TYPE 2 DIABETES MELLITUS
     Dates: start: 201608

REACTIONS (2)
  - Blood glucose increased [Unknown]
  - Device issue [Unknown]

NARRATIVE: CASE EVENT DATE: 2016
